FAERS Safety Report 8603968 (Version 5)
Quarter: 2012Q4

REPORT INFORMATION
  Report Type: 
  Country: KW (occurrence: KW)
  Receive Date: 20120608
  Receipt Date: 20121001
  Transmission Date: 20130627
  Serious: No
  Sender: FDA-Public Use
  Company Number: KW-BIOGENIDEC-2012BI014261

PATIENT
  Age: 28 Year
  Sex: Female

DRUGS (5)
  1. TYSABRI [Suspect]
     Indication: MULTIPLE SCLEROSIS
     Route: 042
     Dates: start: 200711, end: 201004
  2. TYSABRI [Suspect]
     Indication: MULTIPLE SCLEROSIS
     Route: 042
     Dates: start: 201011, end: 20120305
  3. VIT D + CALCIUM [Concomitant]
  4. ELTROXIN [Concomitant]
  5. FOSAMAX [Concomitant]

REACTIONS (1)
  - Multiple sclerosis relapse [Unknown]
